FAERS Safety Report 8541747-5 (Version None)
Quarter: 2012Q3

REPORT INFORMATION
  Report Type: 
  Country: None (occurrence: None)
  Receive Date: 20120726
  Receipt Date: 20110902
  Transmission Date: 20120928
  Serious: No
  Sender: FDA-Public Use
  Company Number: US-ASTRAZENECA-2011SE53032

PATIENT
  Age: 50 Year
  Sex: Male
  Weight: 65.8 kg

DRUGS (7)
  1. SEROQUEL [Suspect]
     Route: 048
     Dates: start: 20110801
  2. SEROQUEL [Suspect]
     Indication: MAJOR DEPRESSION
     Route: 048
     Dates: end: 20110701
  3. CLONAZEPAM [Concomitant]
     Indication: BIPOLAR DISORDER
  4. SEROQUEL [Suspect]
     Indication: BIPOLAR DISORDER
     Route: 048
     Dates: end: 20110701
  5. SEROQUEL [Suspect]
     Route: 048
     Dates: start: 20110801
  6. MIRTAZAPINE [Concomitant]
     Indication: DEPRESSION
  7. CLONAZEPAM [Concomitant]
     Indication: DEPRESSION

REACTIONS (2)
  - DEPRESSION [None]
  - DRUG DOSE OMISSION [None]
